FAERS Safety Report 5866583-X (Version None)
Quarter: 2008Q3

REPORT INFORMATION
  Report Type: 
  Country: None (occurrence: None)
  Receive Date: 20080902
  Receipt Date: 20080822
  Transmission Date: 20090109
  Serious: Yes (Other)
  Sender: FDA-Public Use
  Company Number: US-JNJFOC-20080601915

PATIENT
  Sex: Female
  Weight: 60.33 kg

DRUGS (9)
  1. TOPAMAX [Suspect]
     Route: 048
  2. TOPAMAX [Suspect]
     Route: 048
  3. TOPAMAX [Suspect]
     Indication: MIGRAINE PROPHYLAXIS
     Route: 048
  4. TOPAMAX [Suspect]
     Dosage: 25-50 MG DAILY
     Route: 048
  5. CYCLOBENZAPRINE HCL [Concomitant]
     Indication: FIBROMYALGIA
     Dosage: 0.7-5 MG, TOOK FOR YEARS
     Route: 048
  6. TIZANIDINE HCL [Concomitant]
     Indication: MIGRAINE
     Route: 048
  7. NORTRIPTYLINE HCL [Concomitant]
     Indication: FIBROMYALGIA
     Dosage: 10-20 MG DAILY
     Route: 048
  8. AMBIEN [Concomitant]
     Indication: SLEEP DISORDER
     Route: 048
  9. SYNTHROID [Concomitant]
     Indication: HYPOTHYROIDISM
     Dosage: TOOK FOR YEARS
     Route: 048

REACTIONS (11)
  - APHASIA [None]
  - ARTHRALGIA [None]
  - DEPRESSION [None]
  - DRY MOUTH [None]
  - INFLUENZA LIKE ILLNESS [None]
  - ORAL CANDIDIASIS [None]
  - ORAL DISCOMFORT [None]
  - PAIN [None]
  - PHOTOSENSITIVITY REACTION [None]
  - THERAPEUTIC RESPONSE DECREASED [None]
  - WRONG TECHNIQUE IN DRUG USAGE PROCESS [None]
